FAERS Safety Report 8243349-7 (Version None)
Quarter: 2012Q1

REPORT INFORMATION
  Report Type: 
  Country: None (occurrence: None)
  Receive Date: 20120329
  Receipt Date: 20120319
  Transmission Date: 20120608
  Serious: No
  Sender: FDA-Public Use
  Company Number: US-B.I. PHARMACEUTICALS,INC./RIDGEFIELD-2011-BP-24347BP

PATIENT
  Sex: Female

DRUGS (6)
  1. PRADAXA [Suspect]
     Dosage: 300 MG
     Route: 048
     Dates: start: 20111003
  2. ASPIRIN [Concomitant]
     Indication: ATRIAL FIBRILLATION
  3. ALTACE [Concomitant]
     Indication: HYPERTENSION
  4. LOW THYROID PILL [Concomitant]
     Indication: HYPOTHYROIDISM
  5. PRADAXA [Suspect]
     Indication: ATRIAL FIBRILLATION
     Dosage: 300 MG
     Route: 048
     Dates: start: 20110601, end: 20110701
  6. BYSTOLIC [Concomitant]
     Indication: HYPERTENSION

REACTIONS (3)
  - WEIGHT DECREASED [None]
  - DECREASED APPETITE [None]
  - DYSPEPSIA [None]
